FAERS Safety Report 14577366 (Version 1)
Quarter: 2018Q1

REPORT INFORMATION
  Report Type: Spontaneous
  Country: US (occurrence: US)
  Receive Date: 20180226
  Receipt Date: 20180226
  Transmission Date: 20180509
  Serious: Yes (Hospitalization)
  Sender: FDA-Public Use
  Company Number: None

PATIENT
  Age: 34 Year
  Sex: Female
  Weight: 58.95 kg

DRUGS (4)
  1. OSELTAMIVIR PHOSPHATE CAPSULE, USP [Suspect]
     Active Substance: OSELTAMIVIR PHOSPHATE
     Indication: INFLUENZA
     Route: 048
     Dates: start: 20180225, end: 20180225
  2. ACETAMINOPHEN 1000MG PER 100ML [Concomitant]
     Active Substance: ACETAMINOPHEN
     Dates: start: 20180225, end: 20180225
  3. NS 1000 ML BAG [Concomitant]
     Dates: start: 20180225, end: 20180226
  4. DUONEB NEBULIZER TREATMENT [Concomitant]
     Dates: start: 20180225, end: 20180226

REACTIONS (1)
  - Anaphylactic reaction [None]

NARRATIVE: CASE EVENT DATE: 20180225
